FAERS Safety Report 17934163 (Version 1)
Quarter: 2020Q2

REPORT INFORMATION
  Report Type: Spontaneous
  Country: US (occurrence: US)
  Receive Date: 20200623
  Receipt Date: 20200623
  Transmission Date: 20200714
  Serious: No
  Sender: FDA-Public Use
  Company Number: US-AMGEN-USASP2020099360

PATIENT
  Age: 78 Year
  Sex: Female

DRUGS (24)
  1. AZITHROMYCIN ANHYDROUS. [Concomitant]
     Active Substance: AZITHROMYCIN ANHYDROUS
  2. FOLIC ACID. [Concomitant]
     Active Substance: FOLIC ACID
  3. MULTIVITAMIN [ASCORBIC ACID;BIOTIN;CALCIUM PANTOTHENATE;CYANOCOBALAMIN [Concomitant]
     Active Substance: VITAMINS
  4. OXYCODONE [Concomitant]
     Active Substance: OXYCODONE
  5. PROLIA [Suspect]
     Active Substance: DENOSUMAB
     Indication: PRODUCT USED FOR UNKNOWN INDICATION
     Route: 065
  6. ARANESP [Suspect]
     Active Substance: DARBEPOETIN ALFA
     Dosage: 150 MILLIGRAM, QWK
     Route: 065
     Dates: start: 20200617
  7. AZATHIOPRINE. [Concomitant]
     Active Substance: AZATHIOPRINE
  8. ARANESP [Suspect]
     Active Substance: DARBEPOETIN ALFA
     Indication: ANAEMIA
     Dosage: UNK UNK, Q2WK
     Route: 065
     Dates: start: 2019
  9. ASPIRIN [ACETYLSALICYLIC ACID] [Concomitant]
     Active Substance: ASPIRIN
  10. DOXAZOSIN [Concomitant]
     Active Substance: DOXAZOSIN MESYLATE
  11. LEVOTHYROXINE. [Concomitant]
     Active Substance: LEVOTHYROXINE
  12. ZOFRAN [Concomitant]
     Active Substance: ONDANSETRON HYDROCHLORIDE
  13. ARANESP [Suspect]
     Active Substance: DARBEPOETIN ALFA
     Dosage: RAISED DOSE, Q3WK
     Route: 065
  14. AMLODIPINE BESYLATE. [Concomitant]
     Active Substance: AMLODIPINE BESYLATE
  15. CYCLOSPORINE. [Concomitant]
     Active Substance: CYCLOSPORINE
  16. METOPROLOL SUCCINATE. [Concomitant]
     Active Substance: METOPROLOL SUCCINATE
  17. ALBUTEROL [SALBUTAMOL] [Concomitant]
     Active Substance: ALBUTEROL
  18. PENTAMIDINE [Concomitant]
     Active Substance: PENTAMIDINE
  19. ARANESP [Suspect]
     Active Substance: DARBEPOETIN ALFA
     Dosage: 300 MILLIGRAM
     Route: 065
     Dates: start: 202006
  20. FUROSEMIDE. [Concomitant]
     Active Substance: FUROSEMIDE
  21. PREDNISONE. [Concomitant]
     Active Substance: PREDNISONE
  22. PRILOSEC [Concomitant]
     Active Substance: OMEPRAZOLE MAGNESIUM
  23. ARANESP [Suspect]
     Active Substance: DARBEPOETIN ALFA
     Dosage: 50 (TWO INJECTIONS), UNK
     Route: 065
     Dates: start: 202005
  24. VITAMIN D [ERGOCALCIFEROL] [Concomitant]
     Active Substance: ERGOCALCIFEROL

REACTIONS (2)
  - Injection site pain [Unknown]
  - Neck pain [Unknown]

NARRATIVE: CASE EVENT DATE: 2019
